FAERS Safety Report 4533604-6 (Version None)
Quarter: 2004Q4

REPORT INFORMATION
  Report Type: 
  Country: None (occurrence: None)
  Receive Date: 20041210
  Receipt Date: 20040930
  Transmission Date: 20050328
  Serious: Yes (Other)
  Sender: FDA-Public Use
  Company Number: A03200403312

PATIENT
  Age: 76 Year
  Sex: Female
  Weight: 68.9467 kg

DRUGS (3)
  1. ELOXATIN [Suspect]
     Indication: COLON CANCER METASTATIC
     Dosage: 85MG/M2 Q2W INTRAVENOUS NOS
     Route: 042
     Dates: start: 20040719, end: 20040719
  2. LEUCOVORIN [Suspect]
     Indication: COLON CANCER METASTATIC
     Dates: start: 20040719, end: 20040719
  3. FLUOROURACIL [Suspect]
     Indication: COLON CANCER METASTATIC
     Dates: start: 20040719, end: 20040719

REACTIONS (4)
  - APNOEA [None]
  - CHOKING [None]
  - COUGH [None]
  - WHEEZING [None]
